FAERS Safety Report 7097563-7 (Version None)
Quarter: 2010Q4

REPORT INFORMATION
  Report Type: 
  Country: None (occurrence: None)
  Receive Date: 20101111
  Receipt Date: 20101105
  Transmission Date: 20110411
  Serious: Yes (Hospitalization)
  Sender: FDA-Public Use
  Company Number: JP-ABBOTT-10P-087-0683450-00

PATIENT
  Age: 10 Year
  Sex: Male

DRUGS (5)
  1. CEFZON [Suspect]
     Indication: PRODUCT USED FOR UNKNOWN INDICATION
     Dosage: 300 MG, UNKNOWN/D
     Route: 048
     Dates: start: 20101015, end: 20101020
  2. BIOFERMIN [Suspect]
     Indication: PRODUCT USED FOR UNKNOWN INDICATION
     Dosage: 3 G, UNKNOWN/D
     Route: 048
     Dates: start: 20101015, end: 20101020
  3. SENEGA SYRUP [Suspect]
     Indication: PRODUCT USED FOR UNKNOWN INDICATION
     Route: 048
     Dates: start: 20101015, end: 20101020
  4. ALIMEZINE [Suspect]
     Indication: PRODUCT USED FOR UNKNOWN INDICATION
     Route: 048
     Dates: start: 20101015, end: 20101020
  5. MUCOTRON [Suspect]
     Indication: PRODUCT USED FOR UNKNOWN INDICATION
     Route: 048
     Dates: start: 20101015, end: 20101020

REACTIONS (1)
  - DRUG ERUPTION [None]
